FAERS Safety Report 21698715 (Version 1)
Quarter: 2022Q4

REPORT INFORMATION
  Report Type: Spontaneous
  Country: US (occurrence: US)
  Receive Date: 20221208
  Receipt Date: 20221208
  Transmission Date: 20230113
  Serious: No
  Sender: FDA-Public Use
  Company Number: US-BIOGEN-2022BI01173447

PATIENT
  Age: 62 Year
  Sex: Female
  Weight: 55.3 kg

DRUGS (4)
  1. TECFIDERA [Suspect]
     Active Substance: DIMETHYL FUMARATE
     Indication: Relapsing-remitting multiple sclerosis
     Route: 050
     Dates: start: 2017
  2. BACLOFEN [Concomitant]
     Active Substance: BACLOFEN
     Indication: Muscle spasms
     Route: 050
     Dates: start: 20221031
  3. GABAPENTIN [Concomitant]
     Active Substance: GABAPENTIN
     Indication: Sciatica
     Dosage: ONE TABLET DAILY AND 1.5 TABLET AT BEDTIME
     Route: 050
     Dates: start: 20220531
  4. OXYBUTYNIN [Concomitant]
     Active Substance: OXYBUTYNIN
     Route: 050
     Dates: start: 20220614

REACTIONS (5)
  - Paraesthesia [Unknown]
  - Lower limb fracture [Unknown]
  - Cognitive disorder [Unknown]
  - Erythema [Unknown]
  - Flushing [Unknown]

NARRATIVE: CASE EVENT DATE: 20220801
